FAERS Safety Report 4280545-8 (Version None)
Quarter: 2004Q1

REPORT INFORMATION
  Report Type: 
  Country: None (occurrence: None)
  Receive Date: 20040128
  Receipt Date: 20030721
  Transmission Date: 20041129
  Serious: Yes (Hospitalization)
  Sender: FDA-Public Use
  Company Number: WAES 0307FRA00049

PATIENT
  Age: 82 Year
  Sex: Female

DRUGS (11)
  1. ADRAFINIL [Concomitant]
     Dates: end: 20030508
  2. BUFLOMEDIL HYDROCHLORIDE [Concomitant]
     Route: 048
     Dates: end: 20030508
  3. BUFLOMEDIL HYDROCHLORIDE [Concomitant]
     Route: 048
     Dates: start: 20030509
  4. DIGOXIN [Concomitant]
     Route: 048
  5. FLUINDIONE [Concomitant]
     Route: 048
     Dates: start: 20020508, end: 20030508
  6. FLUINDIONE [Concomitant]
     Route: 048
     Dates: start: 20030501
  7. FUROSEMIDE [Concomitant]
     Route: 048
     Dates: start: 20030408
  8. LOSARTAN POTASSIUM [Concomitant]
     Route: 048
  9. MELILOT AND RUTIN [Concomitant]
     Dates: end: 20030508
  10. ROFECOXIB [Suspect]
     Route: 048
     Dates: start: 20021108, end: 20030508
  11. SPIRONOLACTONE [Suspect]
     Route: 048
     Dates: end: 20030508

REACTIONS (6)
  - CARDIAC FAILURE [None]
  - CARDIOACTIVE DRUG LEVEL INCREASED [None]
  - INTERNATIONAL NORMALISED RATIO INCREASED [None]
  - LUNG DISORDER [None]
  - RENAL ATROPHY [None]
  - RENAL FAILURE [None]
